FAERS Safety Report 8437806-8 (Version None)
Quarter: 2012Q2

REPORT INFORMATION
  Report Type: 
  Country: None (occurrence: None)
  Receive Date: 20120614
  Receipt Date: 20120510
  Transmission Date: 20120825
  Serious: No
  Sender: FDA-Public Use
  Company Number: US-AMGEN-USASP2012024047

PATIENT
  Age: 74 Year
  Sex: Female
  Weight: 58.503 kg

DRUGS (1)
  1. PROLIA [Suspect]
     Indication: OSTEOPOROSIS POSTMENOPAUSAL
     Dosage: 60 MG, Q6MO
     Route: 058
     Dates: start: 20120410

REACTIONS (8)
  - PAIN [None]
  - PAIN OF SKIN [None]
  - BONE PAIN [None]
  - MYALGIA [None]
  - NIGHT SWEATS [None]
  - PYREXIA [None]
  - ABDOMINAL PAIN [None]
  - INFLUENZA [None]
